FAERS Safety Report 6370819-9 (Version None)
Quarter: 2009Q3

REPORT INFORMATION
  Report Type: 
  Country: None (occurrence: None)
  Receive Date: 20090923
  Receipt Date: 20070530
  Transmission Date: 20100115
  Serious: No
  Sender: FDA-Public Use
  Company Number: US-ASTRAZENECA-2006UW24655

PATIENT
  Age: 45 Year
  Sex: Male
  Weight: 104.3 kg

DRUGS (16)
  1. SEROQUEL [Suspect]
     Indication: STRESS
     Route: 048
     Dates: start: 20000101, end: 20060101
  2. HALDOL [Concomitant]
  3. LIPITOR [Concomitant]
  4. VIAGRA [Concomitant]
  5. VICODIN [Concomitant]
  6. BACLOFEN [Concomitant]
  7. PROCARDIA XL [Concomitant]
  8. TYLENOL (CAPLET) [Concomitant]
  9. VALIUM [Concomitant]
  10. SOMA [Concomitant]
  11. GLUCOPHAGE [Concomitant]
  12. TORADOL [Concomitant]
  13. LOTENSIN [Concomitant]
  14. FELDENE [Concomitant]
  15. CODEINE SULFATE [Concomitant]
  16. LESCOL [Concomitant]

REACTIONS (27)
  - ABDOMINAL HERNIA REPAIR [None]
  - ANXIETY [None]
  - ARTHRALGIA [None]
  - BACK PAIN [None]
  - BRONCHITIS [None]
  - CHEST PAIN [None]
  - CHRONIC OBSTRUCTIVE PULMONARY DISEASE [None]
  - DIABETES MELLITUS [None]
  - EPICONDYLITIS [None]
  - HAEMORRHOIDS [None]
  - HALLUCINATION, AUDITORY [None]
  - HEADACHE [None]
  - INCISIONAL HERNIA [None]
  - MUSCULOSKELETAL CHEST PAIN [None]
  - MUSCULOSKELETAL PAIN [None]
  - PAIN IN EXTREMITY [None]
  - PHARYNGITIS [None]
  - PNEUMONIA [None]
  - RETINOPATHY [None]
  - SCHIZOAFFECTIVE DISORDER [None]
  - SCIATICA [None]
  - SCOTOMA [None]
  - SKIN EXFOLIATION [None]
  - TENDONITIS [None]
  - VIRAL UPPER RESPIRATORY TRACT INFECTION [None]
  - VOMITING [None]
  - XEROSIS [None]
